FAERS Safety Report 8502155-6 (Version None)
Quarter: 2012Q2

REPORT INFORMATION
  Report Type: 
  Country: None (occurrence: None)
  Receive Date: 20120405
  Receipt Date: 20100927
  Transmission Date: 20120825
  Serious: Yes (Disabling, Other)
  Sender: FDA-Public Use
  Company Number: PHHY2010US61782

PATIENT
  Age: 67 Year
  Sex: Female
  Weight: 77 kg

DRUGS (5)
  1. LOVAZA [Concomitant]
  2. RECLAST [Suspect]
     Indication: OSTEOPOROSIS
     Dosage: 5 MG ONCE YEARLY, INTRAVENOUS
     Route: 042
     Dates: start: 20100823
  3. SIMVASTATIN [Concomitant]
  4. VITAMIN D [Concomitant]
  5. CALCIUM CARBONATE [Concomitant]

REACTIONS (4)
  - ARTHRALGIA [None]
  - INSOMNIA [None]
  - BONE PAIN [None]
  - GAIT DISTURBANCE [None]
